FAERS Safety Report 19938197 (Version 2)
Quarter: 2021Q4

REPORT INFORMATION
  Report Type: Spontaneous
  Country: DE (occurrence: DE)
  Receive Date: 20211011
  Receipt Date: 20211022
  Transmission Date: 20220303
  Serious: Yes (Death, Other)
  Sender: FDA-Public Use
  Company Number: DE-AMGEN-DEUSP2021153469

PATIENT
  Age: 72 Year
  Sex: Female
  Weight: 72 kg

DRUGS (9)
  1. XGEVA [Suspect]
     Active Substance: DENOSUMAB
     Indication: Metastases to bone
     Dosage: UNK
     Route: 058
     Dates: start: 20111101
  2. PACLITAXEL [Concomitant]
     Active Substance: PACLITAXEL
     Dosage: 80 MILLIGRAM
     Dates: start: 20120522, end: 20120619
  3. ATACAND [Concomitant]
     Active Substance: CANDESARTAN CILEXETIL
  4. METOPROLOL SUCCINATE [Concomitant]
     Active Substance: METOPROLOL SUCCINATE
  5. CIPROBAY [Concomitant]
     Dosage: 500 MILLIGRAM
     Dates: start: 20120605, end: 20120703
  6. CALCIUM CARBONATE\CHOLECALCIFEROL [Concomitant]
     Active Substance: CALCIUM CARBONATE\CHOLECALCIFEROL
     Indication: Prophylaxis
  7. RANITIDINE HYDROCHLORIDE [Concomitant]
     Active Substance: RANITIDINE HYDROCHLORIDE
     Indication: Adverse event
     Dosage: 50 MILLIGRAM
     Dates: start: 20120612, end: 20120612
  8. PREDNISOLONE SODIUM SUCCINATE [Concomitant]
     Active Substance: PREDNISOLONE SODIUM SUCCINATE
     Indication: Adverse event
     Dosage: 250 MILLIGRAM
     Dates: start: 20120612, end: 20120612
  9. CLEMASTINE FUMARATE [Concomitant]
     Active Substance: CLEMASTINE FUMARATE
     Indication: Adverse event
     Dosage: 2 MILLIGRAM
     Dates: start: 20120612, end: 20120612

REACTIONS (4)
  - Death [Fatal]
  - Neutrophil count decreased [Recovered/Resolved]
  - Weight decreased [Not Recovered/Not Resolved]
  - Decreased appetite [Not Recovered/Not Resolved]

NARRATIVE: CASE EVENT DATE: 20120605
